FAERS Safety Report 4281826-4 (Version None)
Quarter: 2004Q1

REPORT INFORMATION
  Report Type: 
  Country: None (occurrence: None)
  Receive Date: 20040129
  Receipt Date: 20040115
  Transmission Date: 20041129
  Serious: Yes (Hospitalization, Disabling, Other)
  Sender: FDA-Public Use
  Company Number: 03-00711

PATIENT
  Sex: Female
  Weight: 48.9885 kg

DRUGS (6)
  1. LINDANE [Suspect]
     Indication: ACARODERMATITIS
     Dosage: 1% TOPICAL
     Route: 061
     Dates: start: 20020107, end: 20030203
  2. LINDANE [Suspect]
     Indication: ACARODERMATITIS
     Dosage: 1%, TOPICAL
     Route: 061
     Dates: start: 20020107, end: 20030203
  3. VITAMIN B-12 [Concomitant]
  4. ZINC SULFATE [Concomitant]
  5. ^HEART MEDICATION^ [Concomitant]
  6. ^LIVER MEDICATION^ [Concomitant]

REACTIONS (21)
  - AMNESIA [None]
  - ARTHRALGIA [None]
  - ASTHENIA [None]
  - DRUG TOXICITY [None]
  - FORMICATION [None]
  - GASTROINTESTINAL DISORDER [None]
  - HAIR GROWTH ABNORMAL [None]
  - HEADACHE [None]
  - IMPAIRED WORK ABILITY [None]
  - INGROWN HAIR [None]
  - MYALGIA [None]
  - NERVOUS SYSTEM DISORDER [None]
  - ORAL MUCOSAL DISORDER [None]
  - PAIN [None]
  - PALPITATIONS [None]
  - PARAESTHESIA [None]
  - PRURITUS [None]
  - SKIN LACERATION [None]
  - SOMNOLENCE [None]
  - SWELLING [None]
  - SWELLING FACE [None]
